FAERS Safety Report 12935715 (Version 1)
Quarter: 2016Q4

REPORT INFORMATION
  Report Type: Spontaneous
  Country: US (occurrence: US)
  Receive Date: 20161114
  Receipt Date: 20161114
  Transmission Date: 20170207
  Serious: No
  Sender: FDA-Public Use
  Company Number: US-TEVA-694221USA

PATIENT
  Age: 65 Year
  Sex: Female

DRUGS (2)
  1. LORAZEPAM. [Suspect]
     Active Substance: LORAZEPAM
     Indication: ANXIETY
     Route: 065
  2. LORAZEPAM. [Suspect]
     Active Substance: LORAZEPAM
     Dosage: 1/2 TABLET PER DAY

REACTIONS (2)
  - Fatigue [Unknown]
  - Photopsia [Unknown]

NARRATIVE: CASE EVENT DATE: 2016
